FAERS Safety Report 21909568 (Version 1)
Quarter: 2023Q1

REPORT INFORMATION
  Report Type: Spontaneous
  Country: US (occurrence: US)
  Receive Date: 20230125
  Receipt Date: 20230125
  Transmission Date: 20230418
  Serious: Yes (Hospitalization, Disabling, Other)
  Sender: FDA-Public Use
  Company Number: US-MERCK-1202USA03517

PATIENT
  Sex: Female
  Weight: 72.562 kg

DRUGS (4)
  1. FOSAMAX [Suspect]
     Active Substance: ALENDRONATE SODIUM
     Indication: Osteoporosis
     Dosage: 70 MG, UNK
     Route: 048
     Dates: start: 1998, end: 2009
  2. FOSAMAX [Suspect]
     Active Substance: ALENDRONATE SODIUM
     Indication: Osteopenia
  3. BONIVA [Suspect]
     Active Substance: IBANDRONATE SODIUM
     Indication: Osteoporosis
     Dosage: UNK
     Dates: start: 2000, end: 201006
  4. BONIVA [Suspect]
     Active Substance: IBANDRONATE SODIUM
     Indication: Osteopenia

REACTIONS (47)
  - Intervertebral disc protrusion [Unknown]
  - Hysterectomy [Unknown]
  - Osteonecrosis [Unknown]
  - Spinal osteoarthritis [Not Recovered/Not Resolved]
  - Femur fracture [Recovering/Resolving]
  - Femur fracture [Recovering/Resolving]
  - Femur fracture [Recovering/Resolving]
  - Neuropathy peripheral [Recovering/Resolving]
  - Meniere^s disease [Unknown]
  - Gallbladder operation [Unknown]
  - Low turnover osteopathy [Unknown]
  - Vitamin D deficiency [Unknown]
  - Tooth disorder [Unknown]
  - Tooth disorder [Unknown]
  - Greater trochanteric pain syndrome [Unknown]
  - Osteoarthritis [Unknown]
  - Skin tightness [Unknown]
  - Foot fracture [Unknown]
  - Eye disorder [Unknown]
  - Adverse event [Unknown]
  - Anaemia [Unknown]
  - Glucose tolerance impaired [Recovered/Resolved]
  - Iodine allergy [Unknown]
  - Fluid retention [Unknown]
  - Foot fracture [Unknown]
  - Radiculopathy [Unknown]
  - Trigger finger [Unknown]
  - Stress [Unknown]
  - Inner ear disorder [Unknown]
  - Excessive cerumen production [Unknown]
  - Adverse drug reaction [Unknown]
  - Hiatus hernia [Unknown]
  - Pain in extremity [Recovered/Resolved]
  - Arthralgia [Unknown]
  - Back pain [Unknown]
  - Alopecia [Unknown]
  - Metatarsalgia [Recovering/Resolving]
  - Myalgia [Unknown]
  - Vertigo [Unknown]
  - Arthralgia [Unknown]
  - Arthralgia [Unknown]
  - Back pain [Unknown]
  - Gastrooesophageal reflux disease [Unknown]
  - Hypercalciuria [Unknown]
  - Blood calcium increased [Unknown]
  - Weight increased [Unknown]
  - Lipohypertrophy [Unknown]

NARRATIVE: CASE EVENT DATE: 19991116
